FAERS Safety Report 8163094-6 (Version None)
Quarter: 2012Q1

REPORT INFORMATION
  Report Type: 
  Country: None (occurrence: None)
  Receive Date: 20120224
  Receipt Date: 20120215
  Transmission Date: 20120608
  Serious: Yes (Hospitalization)
  Sender: FDA-Public Use
  Company Number: FR-GLAXOSMITHKLINE-B0781670A

PATIENT
  Age: 48 Year
  Sex: Male

DRUGS (9)
  1. ARIXTRA [Suspect]
     Indication: PRODUCT USED FOR UNKNOWN INDICATION
     Dosage: 2.5MG PER DAY
     Route: 058
     Dates: start: 20111228, end: 20120110
  2. DAFLON [Concomitant]
     Dosage: 500UNIT TWICE PER DAY
  3. UN-ALPHA [Concomitant]
     Dosage: .5UNIT PER DAY
  4. POTASSIUM CHLORIDE [Concomitant]
     Dosage: 1000UNIT PER DAY
  5. POLYETHYLENE GLYCOL [Concomitant]
  6. LASIX [Concomitant]
  7. OMEPRAZOLE [Concomitant]
     Dosage: 20UNIT PER DAY
  8. LOXEN [Concomitant]
     Dosage: 50UNIT PER DAY
     Route: 050
  9. ATORVASTATIN [Concomitant]
     Dosage: 40UNIT PER DAY

REACTIONS (4)
  - OFF LABEL USE [None]
  - ASTHENIA [None]
  - ANAEMIA [None]
  - HAEMATOMA [None]
